FAERS Safety Report 9626473 (Version 1)
Quarter: 2013Q4

REPORT INFORMATION
  Report Type: Spontaneous
  Country: SE (occurrence: SE)
  Receive Date: 20131016
  Receipt Date: 20131016
  Transmission Date: 20140711
  Serious: Yes (Hospitalization)
  Sender: FDA-Public Use
  Company Number: SE-ASTRAZENECA-2013SE74551

PATIENT
  Age: 24624 Day
  Sex: Male
  Weight: 75 kg

DRUGS (10)
  1. METOPROLOL [Suspect]
     Indication: HYPERTENSION
     Route: 048
  2. NEXIUM HP [Suspect]
     Route: 048
     Dates: start: 20131002
  3. AMIMOX [Suspect]
     Route: 065
     Dates: start: 20131002
  4. OMEPRAZOL [Suspect]
     Indication: GASTRIC DISORDER
     Route: 048
  5. KLACID [Suspect]
     Route: 065
     Dates: start: 20131002
  6. ALVEDON [Concomitant]
  7. INOLAXOL [Concomitant]
  8. ATORVASTATIN [Concomitant]
  9. ENALAPRIL [Concomitant]
  10. TROMBYL [Concomitant]

REACTIONS (9)
  - Back pain [Unknown]
  - Pain in extremity [Unknown]
  - Duodenitis [Unknown]
  - Chest pain [Unknown]
  - Fibromyalgia [Unknown]
  - Dysgeusia [Unknown]
  - Insomnia [Unknown]
  - Nausea [Unknown]
  - Drug ineffective [Unknown]
